FAERS Safety Report 7498484-8 (Version None)
Quarter: 2011Q2

REPORT INFORMATION
  Report Type: 
  Country: None (occurrence: None)
  Receive Date: 20110524
  Receipt Date: 20081001
  Transmission Date: 20111010
  Serious: Yes (Other)
  Sender: FDA-Public Use
  Company Number: US-BAYER-201040175NA

PATIENT
  Age: 77 Year
  Sex: Female
  Weight: 63.4 kg

DRUGS (30)
  1. XANAX [Concomitant]
     Dosage: UNK
     Dates: start: 20050101
  2. ANCEF [Concomitant]
     Dosage: 2 G, UNK
     Route: 042
     Dates: start: 20051101, end: 20051101
  3. MANNITOL [Concomitant]
     Dosage: 25 G, UNK
     Route: 042
     Dates: start: 20051101, end: 20051101
  4. PROPAFENONE HCL [Concomitant]
     Dosage: 150 MG, TID
     Route: 048
     Dates: start: 20050101
  5. TENORMIN [Concomitant]
     Dosage: UNK
     Dates: start: 20050101
  6. DOBUTAMINE HYDROCHLORIDE [Concomitant]
     Indication: BLOOD PRESSURE MANAGEMENT
     Dosage: 5-2.5MCG/KG/MIN
     Dates: start: 20051101, end: 20051103
  7. LIDOCAINE [Concomitant]
     Dosage: 100 MG, UNK
     Route: 042
     Dates: start: 20051101, end: 20051101
  8. PROTAMINE SULFATE [Concomitant]
     Dosage: 250 MG, UNK
     Route: 042
     Dates: start: 20051101, end: 20051101
  9. FENTANYL [Concomitant]
     Dosage: 0.25 MG, UNK
     Route: 042
     Dates: start: 20051101, end: 20051101
  10. TRASYLOL [Suspect]
     Dosage: 50 ML/HR INFUSION
     Route: 042
     Dates: start: 20051101, end: 20051101
  11. METOPROLOL SUCCINATE [Concomitant]
     Dosage: 50 MG, QD
     Route: 048
  12. COUMADIN [Concomitant]
     Dosage: UNK
     Dates: start: 20050101
  13. NITROGLYCERIN [Concomitant]
     Indication: VASODILATION PROCEDURE
     Dosage: UNK
     Route: 042
     Dates: start: 20051101, end: 20051101
  14. HEPARIN [Concomitant]
     Dosage: 10000 U, UNK
     Route: 042
     Dates: start: 20051101, end: 20051101
  15. TRASYLOL [Suspect]
     Indication: CORONARY ARTERY BYPASS
     Dosage: 200 ML, ONCE, LOADING DOSE
     Route: 042
     Dates: start: 20051101, end: 20051101
  16. HYDROCODIN [HYDROCODONE BITARTRATE] [Concomitant]
     Dosage: UNK
     Dates: start: 20050101
  17. TRASYLOL [Suspect]
     Indication: AORTIC VALVE REPLACEMENT
     Dosage: UNSPECIFIED AMOUNT OF INITIAL TEST DOSE
     Route: 042
     Dates: start: 20051101, end: 20051101
  18. SODIUM BICARBONATE [Concomitant]
     Dosage: 40 MILLEQUIVILANT
     Route: 042
     Dates: start: 20051101, end: 20051101
  19. LASIX [Concomitant]
     Dosage: 30 MG, UNK
     Route: 042
     Dates: start: 20051101, end: 20051101
  20. FERGON [Concomitant]
     Dosage: UNK
     Dates: start: 20050101
  21. PREVACID [Concomitant]
     Dosage: 30 MG, QD
     Route: 048
     Dates: start: 20050101
  22. PEPCID [Concomitant]
     Dosage: UNK
     Dates: start: 20051101, end: 20051101
  23. CORDARONE [Concomitant]
     Dosage: UNK
     Dates: start: 20050101
  24. VECURONIUM BROMIDE [Concomitant]
     Dosage: 10 MG, UNK
     Dates: start: 20051101, end: 20051101
  25. RED BLOOD CELLS [Concomitant]
     Indication: HAEMORRHAGIC ANAEMIA
     Dosage: 2 U, UNK
     Route: 042
     Dates: start: 20051101, end: 20051101
  26. PEPCID [Concomitant]
     Dosage: UNK
     Dates: start: 20050101
  27. SURFAK [Concomitant]
     Dosage: UNK
     Dates: start: 20050101
  28. LEVAQUIN [Concomitant]
     Dosage: UNK
     Dates: start: 20050101
  29. MAGNESIUM SULFATE [Concomitant]
     Dosage: 100 MG, UNK
     Dates: start: 20051101, end: 20051101
  30. PAPAVERINE [Concomitant]
     Dosage: 300 MG, UNK
     Route: 042
     Dates: start: 20051101, end: 20051101

REACTIONS (6)
  - RENAL DISORDER [None]
  - STRESS [None]
  - INJURY [None]
  - PAIN [None]
  - EMOTIONAL DISTRESS [None]
  - ANXIETY [None]
